FAERS Safety Report 7802108-7 (Version None)
Quarter: 2011Q4

REPORT INFORMATION
  Report Type: 
  Country: None (occurrence: None)
  Receive Date: 20111007
  Receipt Date: 20110929
  Transmission Date: 20120403
  Serious: No
  Sender: FDA-Public Use
  Company Number: US-B.I. PHARMACEUTICALS,INC./RIDGEFIELD-2011-BP-23190BP

PATIENT
  Sex: Male

DRUGS (3)
  1. PRADAXA [Suspect]
     Indication: ATRIAL FIBRILLATION
     Dosage: 300 MG
     Route: 048
     Dates: start: 20110906
  2. AMIODARONE HCL [Concomitant]
     Indication: ATRIAL FIBRILLATION
     Dosage: 40 MG
     Route: 048
     Dates: start: 20070101
  3. LISINOPRIL [Concomitant]
     Indication: ATRIAL FIBRILLATION
     Dosage: 20 MG
     Route: 048
     Dates: start: 20070101

REACTIONS (1)
  - HYPOAESTHESIA [None]
